FAERS Safety Report 21989024 (Version 1)
Quarter: 2023Q1

REPORT INFORMATION
  Report Type: Report from Study
  Country: FR (occurrence: FR)
  Receive Date: 20230214
  Receipt Date: 20230214
  Transmission Date: 20230418
  Serious: Yes (Hospitalization)
  Sender: FDA-Public Use
  Company Number: FR-Global Blood Therapeutics Inc-FR-GBT-22-01289

PATIENT
  Age: 12 Year
  Sex: Male
  Weight: 28 kg

DRUGS (4)
  1. VOXELOTOR [Suspect]
     Active Substance: VOXELOTOR
     Indication: Product used for unknown indication
     Dates: start: 20220126, end: 20220226
  2. VOXELOTOR [Suspect]
     Active Substance: VOXELOTOR
     Indication: Product used for unknown indication
     Dates: start: 20220302
  3. OXBRYTA [Suspect]
     Active Substance: VOXELOTOR
     Indication: Product used for unknown indication
     Dates: start: 20220126, end: 20220226
  4. OXBRYTA [Suspect]
     Active Substance: VOXELOTOR
     Indication: Product used for unknown indication
     Dates: start: 20220302

REACTIONS (10)
  - Myocardial infarction [Unknown]
  - Hyponatraemia [Recovered/Resolved]
  - Sickle cell anaemia with crisis [Recovered/Resolved]
  - Coronavirus infection [Recovered/Resolved]
  - Weight decreased [Unknown]
  - Fatigue [Unknown]
  - Decreased appetite [Unknown]
  - Condition aggravated [Unknown]
  - Therapy interrupted [Unknown]
  - Medication error [Unknown]

NARRATIVE: CASE EVENT DATE: 20220101
